FAERS Safety Report 7131587-6 (Version None)
Quarter: 2010Q4

REPORT INFORMATION
  Report Type: 
  Country: None (occurrence: None)
  Receive Date: 20101201
  Receipt Date: 20101125
  Transmission Date: 20110411
  Serious: Yes (Hospitalization, Other)
  Sender: FDA-Public Use
  Company Number: CA-ABBOTT-10P-028-0676718-00

PATIENT
  Sex: Male
  Weight: 56.75 kg

DRUGS (1)
  1. HUMIRA [Suspect]
     Indication: PSORIASIS
     Route: 058
     Dates: start: 20090213, end: 20100929

REACTIONS (11)
  - COUGH [None]
  - DYSPNOEA [None]
  - FATIGUE [None]
  - LUNG DISORDER [None]
  - NASOPHARYNGITIS [None]
  - NIGHT BLINDNESS [None]
  - PNEUMONIA [None]
  - PRURITUS [None]
  - PSORIASIS [None]
  - RHINORRHOEA [None]
  - SINUS CONGESTION [None]
